FAERS Safety Report 5902351-8 (Version None)
Quarter: 2008Q3

REPORT INFORMATION
  Report Type: 
  Country: None (occurrence: None)
  Receive Date: 20080919
  Receipt Date: 20080805
  Transmission Date: 20090109
  Serious: No
  Sender: FDA-Public Use
  Company Number: US-WYE-H05400108

PATIENT
  Age: 28 Year
  Sex: Female
  Weight: 95.34 kg

DRUGS (3)
  1. PRISTIQ [Suspect]
     Indication: DEPRESSION
     Dosage: 50 MG 1X PER 1 DAY, ORAL
     Route: 048
     Dates: start: 20080721
  2. MOBIC [Concomitant]
  3. AMBIEN [Concomitant]

REACTIONS (3)
  - RASH [None]
  - SKIN WARM [None]
  - URTICARIA [None]
